FAERS Safety Report 4987348-7 (Version None)
Quarter: 2006Q2

REPORT INFORMATION
  Report Type: 
  Country: None (occurrence: None)
  Receive Date: 20060501
  Receipt Date: 20050620
  Transmission Date: 20061013
  Serious: Yes (Death, Hospitalization, Other)
  Sender: FDA-Public Use
  Company Number: US-MERCK-0506USA02938

PATIENT
  Age: 26 Year
  Sex: Female
  Weight: 59 kg

DRUGS (5)
  1. VIOXX [Suspect]
     Indication: MONARTHRITIS
     Route: 048
     Dates: start: 19990101, end: 20020801
  2. PROZAC [Concomitant]
     Route: 065
  3. PERIOGARD [Concomitant]
     Route: 065
  4. TYLENOL (CAPLET) [Concomitant]
     Route: 065
  5. PRILOSEC [Concomitant]
     Route: 065

REACTIONS (29)
  - ACUTE RESPIRATORY FAILURE [None]
  - ANAEMIA [None]
  - ARTHRALGIA [None]
  - ASTHMA [None]
  - ATELECTASIS [None]
  - CARDIAC DISORDER [None]
  - CARDIAC FAILURE CONGESTIVE [None]
  - CARDIAC VALVE DISEASE [None]
  - CEREBROVASCULAR ACCIDENT [None]
  - CHRONIC OBSTRUCTIVE PULMONARY DISEASE [None]
  - DEEP VEIN THROMBOSIS [None]
  - DIABETES MELLITUS [None]
  - DRUG HYPERSENSITIVITY [None]
  - FALL [None]
  - FALLOT'S TETRALOGY [None]
  - GRAND MAL CONVULSION [None]
  - HEMIPARESIS [None]
  - HYPERGLYCAEMIA [None]
  - LIGAMENT INJURY [None]
  - MYOCARDIAL INFARCTION [None]
  - PNEUMONIA [None]
  - PNEUMONITIS [None]
  - PULMONARY HYPERTENSION [None]
  - PULMONARY VALVE STENOSIS [None]
  - RESPIRATORY DISORDER [None]
  - RESPIRATORY FAILURE [None]
  - SPINAL DISORDER [None]
  - SPINAL LAMINECTOMY [None]
  - SYNCOPE [None]
